FAERS Safety Report 16806406 (Version 2)
Quarter: 2019Q3

REPORT INFORMATION
  Report Type: Report from Study
  Country: US (occurrence: US)
  Receive Date: 20190913
  Receipt Date: 20190920
  Transmission Date: 20191005
  Serious: Yes (Hospitalization)
  Sender: FDA-Public Use
  Company Number: US-ACTELION-A-NJ2019-187937

PATIENT
  Sex: Female

DRUGS (3)
  1. OPSUMIT [Suspect]
     Active Substance: MACITENTAN
     Indication: PRODUCT USED FOR UNKNOWN INDICATION
     Dosage: 10 MG
     Route: 048
  2. ORENITRAM [Concomitant]
     Active Substance: TREPROSTINIL
     Indication: PRODUCT USED FOR UNKNOWN INDICATION
     Route: 048
  3. REMODULIN [Concomitant]
     Active Substance: TREPROSTINIL
     Route: 042

REACTIONS (5)
  - Product dose omission [Recovered/Resolved]
  - Oedema [Unknown]
  - Therapy change [Unknown]
  - Flushing [Unknown]
  - Dry mouth [Not Recovered/Not Resolved]
